FAERS Safety Report 7632212-8 (Version None)
Quarter: 2011Q3

REPORT INFORMATION
  Report Type: 
  Country: None (occurrence: None)
  Receive Date: 20110725
  Receipt Date: 20100702
  Transmission Date: 20111222
  Serious: No
  Sender: FDA-Public Use
  Company Number: US-BRISTOL-MYERS SQUIBB COMPANY-15154123

PATIENT
  Age: 57 Year
  Sex: Female
  Weight: 84 kg

DRUGS (9)
  1. LOTRONEX [Concomitant]
  2. MICROGESTIN FE 1.5/30 [Concomitant]
  3. METOPROLOL TARTRATE [Concomitant]
  4. HYDROCODONE BITARTRATE [Concomitant]
  5. COUMADIN [Suspect]
     Indication: THROMBOSIS PROPHYLAXIS
     Dates: start: 20100406, end: 20100101
  6. WARFARIN SODIUM [Suspect]
     Indication: THROMBOSIS PROPHYLAXIS
     Dates: start: 20100503, end: 20100514
  7. RITALIN [Concomitant]
  8. TRAMADOL HCL [Concomitant]
  9. LOMOTIL [Concomitant]

REACTIONS (1)
  - CYANOSIS [None]
